FAERS Safety Report 12090722 (Version 1)
Quarter: 2016Q1

REPORT INFORMATION
  Report Type: Spontaneous
  Country: US (occurrence: US)
  Receive Date: 20160218
  Receipt Date: 20160218
  Transmission Date: 20160526
  Serious: No
  Sender: FDA-Public Use
  Company Number: US-PERRIGO-15US006991

PATIENT
  Age: 73 Year
  Sex: Female

DRUGS (1)
  1. CETIRIZINE HYDROCHLORIDE. [Suspect]
     Active Substance: CETIRIZINE HYDROCHLORIDE
     Indication: PRURITUS
     Dosage: 10 MG, BID
     Route: 048
     Dates: start: 201505

REACTIONS (10)
  - Malaise [Unknown]
  - Balance disorder [Unknown]
  - Amnesia [Unknown]
  - Insomnia [Unknown]
  - Drug ineffective for unapproved indication [Unknown]
  - Anxiety [Unknown]
  - Somnolence [Unknown]
  - Drug administered to patient of inappropriate age [Unknown]
  - Tremor [Unknown]
  - Headache [Recovering/Resolving]

NARRATIVE: CASE EVENT DATE: 201505
